FAERS Safety Report 14979848 (Version 1)
Quarter: 2018Q2

REPORT INFORMATION
  Report Type: Spontaneous
  Country: US (occurrence: US)
  Receive Date: 20180606
  Receipt Date: 20180606
  Transmission Date: 20180711
  Serious: Yes (Hospitalization, Other)
  Sender: FDA-Public Use
  Company Number: US-SA-2018SA139619

PATIENT
  Age: 77 Year
  Sex: Female
  Weight: 90.8 kg

DRUGS (6)
  1. LANTUS [Suspect]
     Active Substance: INSULIN GLARGINE
     Indication: TYPE 2 DIABETES MELLITUS
     Dosage: 50 U, QD
     Route: 058
     Dates: start: 2003, end: 20180209
  2. MULTAQ [Concomitant]
     Active Substance: DRONEDARONE
     Dosage: UNK
     Dates: start: 20180209
  3. METOLAZONE. [Concomitant]
     Active Substance: METOLAZONE
     Dosage: UNK
     Dates: start: 2017
  4. LANTUS [Suspect]
     Active Substance: INSULIN GLARGINE
     Dosage: 48 UNK
     Dates: start: 20180209
  5. NOVORAPID [Suspect]
     Active Substance: INSULIN ASPART
     Indication: TYPE 2 DIABETES MELLITUS
     Dosage: 19 U
  6. METOLAZONE. [Concomitant]
     Active Substance: METOLAZONE
     Dosage: UNK

REACTIONS (8)
  - Chronic kidney disease [Unknown]
  - Lower respiratory tract infection [Recovering/Resolving]
  - Cardiac failure congestive [Recovered/Resolved]
  - Angina pectoris [Unknown]
  - Blood glucose increased [Unknown]
  - Hypertension [Unknown]
  - Blood glucose decreased [Unknown]
  - Anaemia [Not Recovered/Not Resolved]

NARRATIVE: CASE EVENT DATE: 201701
